FAERS Safety Report 7914780-1 (Version None)
Quarter: 2011Q4

REPORT INFORMATION
  Report Type: 
  Country: None (occurrence: None)
  Receive Date: 20111115
  Receipt Date: 20111112
  Transmission Date: 20120403
  Serious: Yes (Death)
  Sender: FDA-Public Use
  Company Number: PHHY2011BR099815

PATIENT
  Sex: Female

DRUGS (5)
  1. EXELON [Suspect]
     Dosage: 9.5 MG (18MG/10CM2 30 SIST)
     Route: 062
  2. EXELON [Suspect]
     Dosage: 13.3 MG (27MG/15CM2 30 SIST)
     Route: 062
  3. EXELON [Suspect]
     Dosage: 120 ML, UNK
     Route: 048
  4. EXELON [Suspect]
     Dosage: 4.6 MG (9MG/5CM2 30 SIST)
     Route: 062
  5. EXELON [Suspect]
     Dosage: 50 ML, UNK
     Route: 048

REACTIONS (1)
  - DEATH [None]
